FAERS Safety Report 24660110 (Version 1)
Quarter: 2024Q4

REPORT INFORMATION
  Report Type: Spontaneous
  Country: CN (occurrence: CN)
  Receive Date: 20241125
  Receipt Date: 20241125
  Transmission Date: 20250115
  Serious: Yes (Other)
  Sender: GLAXOSMITHKLINE
  Company Number: CN-GSK-CN2024APC144087

PATIENT

DRUGS (3)
  1. ALBUTEROL SULFATE [Suspect]
     Active Substance: ALBUTEROL SULFATE
     Indication: Asthma
     Dosage: 100 UG, TID
     Route: 055
     Dates: start: 20240416, end: 20240416
  2. FLUTICASONE PROPIONATE [Suspect]
     Active Substance: FLUTICASONE PROPIONATE
     Indication: Asthma
     Dosage: UNK
     Dates: start: 20240416
  3. IPRATROPIUM BROMIDE [Suspect]
     Active Substance: IPRATROPIUM BROMIDE
     Indication: Asthma
     Dosage: 20 UG, TID
     Route: 055
     Dates: start: 20240416, end: 20240425

REACTIONS (4)
  - Palpitations [Recovered/Resolved]
  - Panic attack [Recovered/Resolved]
  - Tremor [Recovered/Resolved]
  - Prescription drug used without a prescription [Unknown]

NARRATIVE: CASE EVENT DATE: 20240416
